FAERS Safety Report 24643025 (Version 1)
Quarter: 2024Q4

REPORT INFORMATION
  Report Type: Spontaneous
  Country: FR (occurrence: FR)
  Receive Date: 20241120
  Receipt Date: 20241120
  Transmission Date: 20250115
  Serious: Yes (Other)
  Sender: FRESENIUS KABI
  Company Number: None

PATIENT
  Age: 48 Year
  Sex: Female
  Weight: 54 kg

DRUGS (5)
  1. CARBOPLATIN [Suspect]
     Active Substance: CARBOPLATIN
     Indication: Triple negative breast cancer
     Dosage: AUC 5?ROUTE OF ADMIN: INTRAVENOUS?FORM OF ADMIN: CONCENTRATE AND SOLVENT FOR SOLUTION FOR INJECTION
     Dates: start: 20240814
  2. KEYTRUDA [Suspect]
     Active Substance: PEMBROLIZUMAB
     Indication: Triple negative breast cancer
     Dosage: ROA: INTRAVENOUS?DOSAGE FORM: CONCENTRATE AND SOLVENT FOR SOLUTION FOR INJECTION
     Dates: start: 20240814
  3. PACLITAXEL [Concomitant]
     Active Substance: PACLITAXEL
     Indication: Triple negative breast cancer
     Dosage: ROA: INTRAVENOUS?DOSAGE FORM: CONCENTRATE AND SOLVENT FOR SOLUTION FOR INJECTION
     Dates: start: 20240814
  4. DULOXETINE HYDROCHLORIDE [Concomitant]
     Active Substance: DULOXETINE HYDROCHLORIDE
     Indication: Depression
     Dosage: ROA: ORAL?DOSAGE FORM: CACHET
  5. ALPRAZOLAM [Concomitant]
     Active Substance: ALPRAZOLAM
     Indication: Anxiety
     Dosage: ROA: ORAL?DOSAGE FORM: CACHET

REACTIONS (1)
  - Hepatic cytolysis [Recovered/Resolved]

NARRATIVE: CASE EVENT DATE: 20240912
